FAERS Safety Report 7280029-9 (Version None)
Quarter: 2011Q1

REPORT INFORMATION
  Report Type: 
  Country: None (occurrence: None)
  Receive Date: 20110208
  Receipt Date: 20110126
  Transmission Date: 20110831
  Serious: Yes (Hospitalization, Other)
  Sender: FDA-Public Use
  Company Number: ES-ELI_LILLY_AND_COMPANY-ES201011005014

PATIENT
  Sex: Female
  Weight: 58 kg

DRUGS (9)
  1. OMEPRAZOLE [Concomitant]
     Dosage: 20 MG, DAILY (1/D)
     Route: 048
  2. FORTEO [Suspect]
     Indication: OSTEOPOROSIS
     Dosage: 20 UG, DAILY (1/D)
     Route: 058
     Dates: start: 20100714, end: 20101020
  3. ADIRO [Concomitant]
     Indication: VENOUS INSUFFICIENCY
     Dosage: 1 D/F, DAILY (1/D)
     Route: 048
  4. RIVASTIGMINE TARTRATE [Concomitant]
     Indication: DEMENTIA
     Dosage: 1 D/F, UNK
  5. ZALDIAR [Concomitant]
     Indication: PAIN
     Dosage: 1 D/F IN 8 HOURS, AS NEEDED
  6. FOLI DOCE [Concomitant]
     Indication: OSTEOPOROSIS
     Dosage: 1 D/F, DAILY (1/D)
     Route: 048
  7. CONDROITINA [Concomitant]
     Indication: ANALGESIC THERAPY
     Dosage: 2 D/F, DAILY (1/D)
     Route: 048
  8. IDEOS [Concomitant]
     Indication: OSTEOPOROSIS
     Dosage: 1 D/F, OTHER (EVERY 48 HS)
     Route: 048
  9. INDAPAMIDA [Concomitant]
     Indication: HYPERTENSION
     Dosage: 1.5 MG, DAILY (1/D)
     Route: 048

REACTIONS (2)
  - FAECALOMA [None]
  - DOLICHOCOLON [None]
